FAERS Safety Report 9353918 (Version 3)
Quarter: 2013Q3

REPORT INFORMATION
  Report Type: Spontaneous
  Country: JP (occurrence: JP)
  Receive Date: 20130618
  Receipt Date: 20130704
  Transmission Date: 20140515
  Serious: Yes (Hospitalization, Other)
  Sender: FDA-Public Use
  Company Number: JP-009507513-1306JPN006534

PATIENT
  Age: 78 Year
  Sex: Female

DRUGS (9)
  1. FOSAMAC TABLETS 35MG [Suspect]
     Indication: OSTEOPOROSIS
     Dosage: UNK
     Route: 048
  2. PREDNISOLONE [Suspect]
     Indication: RHEUMATOID ARTHRITIS
     Dosage: UNK
     Route: 048
  3. SALAZOSULFADIMIDINE [Concomitant]
     Route: 048
  4. ALFACALCIDOL [Concomitant]
     Dosage: UNK
     Route: 048
  5. LANZOPRAZOL [Concomitant]
     Route: 048
  6. IMIDAPRIL HYDROCHLORIDE [Concomitant]
     Route: 048
  7. BENIDIPINE HYDROCHLORIDE [Concomitant]
     Route: 048
  8. VALSARTAN [Concomitant]
     Route: 048
  9. PITAVASTATIN CALCIUM [Concomitant]
     Route: 048

REACTIONS (4)
  - Abscess oral [Recovering/Resolving]
  - Thrombophlebitis [Recovering/Resolving]
  - Sepsis [Recovering/Resolving]
  - Osteonecrosis of jaw [Recovering/Resolving]
